FAERS Safety Report 21914958 (Version 1)
Quarter: 2023Q1

REPORT INFORMATION
  Report Type: Spontaneous
  Country: US (occurrence: US)
  Receive Date: 20230126
  Receipt Date: 20230126
  Transmission Date: 20230418
  Serious: No
  Sender: FDA-Public Use
  Company Number: US-CATALYST PHARMACEUTICALS, INC-2022CAT00364

PATIENT
  Age: 10 Year
  Sex: Female

DRUGS (5)
  1. FIRDAPSE [Suspect]
     Active Substance: AMIFAMPRIDINE PHOSPHATE
     Indication: Congenital myasthenic syndrome
     Dosage: 1/4 TABLET (2.5 MG), 2X/DAY
     Route: 048
     Dates: start: 20220617
  2. MESTINON [Concomitant]
     Active Substance: PYRIDOSTIGMINE BROMIDE
     Dosage: 75 MG, EVERY 3 HOURS
  3. MESTINON ER [Concomitant]
     Dosage: 180 MG, 1X/DAY EVERY NIGHT AT BEDTIME
  4. ALBUTEROL METER DOSE INHALER [Concomitant]
     Dosage: UNK, AS NEEDED
  5. FLOVENT HFA [Concomitant]
     Active Substance: FLUTICASONE PROPIONATE
     Dosage: 44 ?G, AS NEEDED

REACTIONS (1)
  - Off label use [Not Recovered/Not Resolved]

NARRATIVE: CASE EVENT DATE: 20220617
